FAERS Safety Report 12519770 (Version 1)
Quarter: 2016Q2

REPORT INFORMATION
  Report Type: Spontaneous
  Country: NL (occurrence: NL)
  Receive Date: 20160630
  Receipt Date: 20160630
  Transmission Date: 20160815
  Serious: Yes (Other)
  Sender: FDA-Public Use
  Company Number: NL-SEPTODONT-201603437

PATIENT
  Age: 52 Year
  Sex: Female
  Weight: 73 kg

DRUGS (2)
  1. CITANEST [Suspect]
     Active Substance: PRILOCAINE
     Indication: LOCAL ANAESTHESIA
     Route: 004
     Dates: start: 20160601
  2. SCANDONEST PLAIN [Suspect]
     Active Substance: MEPIVACAINE HYDROCHLORIDE
     Indication: LOCAL ANAESTHESIA
     Route: 004
     Dates: start: 20160601

REACTIONS (6)
  - Fatigue [Unknown]
  - Chest discomfort [Unknown]
  - Hypoaesthesia [Unknown]
  - Cold sweat [Unknown]
  - Discomfort [Unknown]
  - Palpitations [Unknown]

NARRATIVE: CASE EVENT DATE: 20160601
